FAERS Safety Report 5474202-X (Version None)
Quarter: 2007Q3

REPORT INFORMATION
  Report Type: 
  Country: None (occurrence: None)
  Receive Date: 20070928
  Receipt Date: 20070914
  Transmission Date: 20080115
  Serious: No
  Sender: FDA-Public Use
  Company Number: TPA2007A01924

PATIENT
  Age: 57 Year
  Sex: Female
  Weight: 57.6068 kg

DRUGS (4)
  1. ROZEREM [Suspect]
     Indication: INSOMNIA
     Dosage: 8 MG, AS REQUIRED, PER ORAL; 4 MG, AS REQUIRED, PER ORAL; 2 MG, AS REQUIRED, PER ORAL
     Route: 048
     Dates: start: 20070601, end: 20070601
  2. ROZEREM [Suspect]
     Indication: INSOMNIA
     Dosage: 8 MG, AS REQUIRED, PER ORAL; 4 MG, AS REQUIRED, PER ORAL; 2 MG, AS REQUIRED, PER ORAL
     Route: 048
     Dates: start: 20070601, end: 20070601
  3. ROZEREM [Suspect]
     Indication: INSOMNIA
     Dosage: 8 MG, AS REQUIRED, PER ORAL; 4 MG, AS REQUIRED, PER ORAL; 2 MG, AS REQUIRED, PER ORAL
     Route: 048
     Dates: start: 20070701, end: 20070701
  4. LOTRIL (AMLODIPINE, BENAZEPRIL HYDROCHLORIDE) [Concomitant]

REACTIONS (4)
  - DRUG EFFECT INCREASED [None]
  - FEELING ABNORMAL [None]
  - LARYNGITIS [None]
  - SOMNOLENCE [None]
